FAERS Safety Report 15851658 (Version 2)
Quarter: 2019Q1

REPORT INFORMATION
  Report Type: Report from Study
  Country: GB (occurrence: GB)
  Receive Date: 20190122
  Receipt Date: 20190205
  Transmission Date: 20190417
  Serious: Yes (Other)
  Sender: FDA-Public Use
  Company Number: GB-ACCORD-102882

PATIENT
  Age: 69 Year
  Sex: Female

DRUGS (3)
  1. FUROSEMIDE. [Suspect]
     Active Substance: FUROSEMIDE
     Indication: PRODUCT USED FOR UNKNOWN INDICATION
     Dosage: UNK UNK, PRN AND ALSO RECEIVED 40 MG
     Route: 065
  2. ENTRESTO [Suspect]
     Active Substance: SACUBITRIL\VALSARTAN
     Indication: CARDIAC FAILURE CHRONIC
     Dosage: 100 MG (49 SACUBITRIL/51 VALSARTAN MG), BID
     Route: 065
  3. SACUBITRIL/VALSARTAN [Suspect]
     Active Substance: SACUBITRIL\VALSARTAN
     Indication: PRODUCT USED FOR UNKNOWN INDICATION
     Dosage: 50 MG (24 MG SACUBITRIL/26 MG VALSARTAN), BID
     Route: 065

REACTIONS (5)
  - Hypotension [Unknown]
  - Dyspnoea [Unknown]
  - Dry skin [Unknown]
  - Lethargy [Recovering/Resolving]
  - Renal impairment [Recovered/Resolved]
